FAERS Safety Report 13353684 (Version 1)
Quarter: 2017Q1

REPORT INFORMATION
  Report Type: Spontaneous
  Country: US (occurrence: US)
  Receive Date: 20170319
  Receipt Date: 20170319
  Transmission Date: 20170429
  Serious: No
  Sender: FDA-Public Use
  Company Number: None

PATIENT
  Age: 5 Year
  Sex: Male
  Weight: 21.6 kg

DRUGS (2)
  1. TAMIFLU [Suspect]
     Active Substance: OSELTAMIVIR PHOSPHATE
     Indication: INFLUENZA
     Dosage: ?         6 OTHER STRENGTH:MG/ML;QUANTITY:5 ML;?
     Route: 048
     Dates: start: 20170318, end: 20170319
  2. IBUPROFEN. [Concomitant]
     Active Substance: IBUPROFEN

REACTIONS (4)
  - Abnormal dreams [None]
  - Crying [None]
  - Sleep terror [None]
  - Fatigue [None]

NARRATIVE: CASE EVENT DATE: 20170318
